FAERS Safety Report 13911338 (Version 1)
Quarter: 2017Q3

REPORT INFORMATION
  Report Type: Spontaneous
  Country: CZ (occurrence: CZ)
  Receive Date: 20170828
  Receipt Date: 20170828
  Transmission Date: 20171127
  Serious: Yes (Death, Hospitalization, Other)
  Sender: FDA-Public Use
  Company Number: CZ-TEVA-798304ACC

PATIENT
  Age: 48 Year
  Sex: Female

DRUGS (2)
  1. FLUOROURACILUM [Suspect]
     Active Substance: FLUOROURACIL
     Indication: BONE CANCER
     Dates: start: 20170704, end: 20170707
  2. CISPLATIN. [Suspect]
     Active Substance: CISPLATIN
     Indication: BONE CANCER
     Dates: start: 20170704, end: 20170704

REACTIONS (10)
  - Ileus paralytic [Unknown]
  - Oliguria [Fatal]
  - Haematotoxicity [Fatal]
  - Hypoxia [Fatal]
  - Blood pressure immeasurable [Fatal]
  - Pyrexia [Fatal]
  - Tachycardia [Fatal]
  - Petechiae [Fatal]
  - Sepsis [Fatal]
  - Hypotension [Fatal]

NARRATIVE: CASE EVENT DATE: 20170714
